FAERS Safety Report 17919242 (Version 6)
Quarter: 2020Q3

REPORT INFORMATION
  Report Type: Spontaneous
  Country: FR (occurrence: FR)
  Receive Date: 20200620
  Receipt Date: 20200831
  Transmission Date: 20201103
  Serious: Yes (Hospitalization, Other)
  Sender: FDA-Public Use
  Company Number: FR-TAKEDA-2019TEU003669

PATIENT
  Age: 4 Day
  Sex: Male
  Weight: 2.03 kg

DRUGS (33)
  1. LANSOPRAZOLE. [Suspect]
     Active Substance: LANSOPRAZOLE
     Indication: PRODUCT USED FOR UNKNOWN INDICATION
     Dosage: 30 MILLIGRAM, QD
     Route: 064
     Dates: start: 2017
  2. DACARBAZINE. [Interacting]
     Active Substance: DACARBAZINE
     Dosage: 730 MILLIGRAM/SQ. METER, QD
     Route: 064
     Dates: start: 20171108
  3. VINBLASTINE [Interacting]
     Active Substance: VINBLASTINE
     Indication: HODGKIN^S DISEASE
     Dosage: 10 MILLIGRAM
     Route: 064
  4. VINBLASTINE SULFATE. [Interacting]
     Active Substance: VINBLASTINE SULFATE
     Dosage: 5 MILLIGRAM/SQ. METER, QD
     Route: 064
     Dates: start: 20171108
  5. BLEOMYCIN HYDROCHLORIDE [Interacting]
     Active Substance: BLEOMYCIN HYDROCHLORIDE
     Dosage: 19.2 MILLIGRAM, QD
     Route: 064
     Dates: start: 20171108
  6. SODIUM CHLORIDE. [Suspect]
     Active Substance: SODIUM CHLORIDE
     Dosage: 20 MILLILITER
     Route: 064
     Dates: start: 20171108
  7. ONDANSETRON [Interacting]
     Active Substance: ONDANSETRON
     Dosage: UNK
     Route: 064
     Dates: start: 2017
  8. DACARBAZINE. [Interacting]
     Active Substance: DACARBAZINE
     Dosage: 375 MILLIGRAM/SQ. METER, QD
     Route: 064
     Dates: start: 20171108
  9. PREDNISONE. [Interacting]
     Active Substance: PREDNISONE
     Dosage: 80 MILLIGRAM, QD
     Route: 064
  10. SODIUM CHLORIDE. [Suspect]
     Active Substance: SODIUM CHLORIDE
     Indication: PRODUCT USED FOR UNKNOWN INDICATION
     Dosage: 20 MILLILITER
     Route: 064
     Dates: start: 20171108
  11. DOXORUBICIN [Interacting]
     Active Substance: DOXORUBICIN
     Dosage: 48 MILLIGRAM, QD
     Route: 064
  12. DOXORUBICIN [Interacting]
     Active Substance: DOXORUBICIN
     Route: 064
  13. VALACICLOVIR                       /01269702/ [Interacting]
     Active Substance: VALACYCLOVIR HYDROCHLORIDE
     Indication: PRODUCT USED FOR UNKNOWN INDICATION
     Dosage: 500 MILLIGRAM, QD
     Route: 064
     Dates: start: 2017
  14. ENOXAPARIN SODIUM. [Interacting]
     Active Substance: ENOXAPARIN SODIUM
     Indication: PRODUCT USED FOR UNKNOWN INDICATION
     Dosage: 4000 INTERNATIONAL UNIT, BID
     Route: 064
     Dates: start: 2017
  15. CAFFEINE. [Concomitant]
     Active Substance: CAFFEINE
     Dosage: UNK
  16. ONDANSETRON [Interacting]
     Active Substance: ONDANSETRON
     Indication: PROPHYLAXIS OF NAUSEA AND VOMITING
     Dosage: 8 MILLIGRAM, BID
     Route: 064
     Dates: start: 2017, end: 201711
  17. PREDNISONE. [Interacting]
     Active Substance: PREDNISONE
     Dosage: 80 MILLIGRAM, QD
     Route: 064
     Dates: start: 2017
  18. PREDNISONE. [Interacting]
     Active Substance: PREDNISONE
     Dosage: 80 MILLIGRAM, QD
     Route: 064
  19. GLUCOSE [Interacting]
     Active Substance: DEXTROSE
     Dosage: 20 MILLILITER, QD
     Route: 064
     Dates: start: 20171108
  20. BLEOMYCIN HYDROCHLORIDE [Interacting]
     Active Substance: BLEOMYCIN HYDROCHLORIDE
     Indication: HODGKIN^S DISEASE
     Dosage: 10 MILLIGRAM/SQ. METER, QD
     Route: 064
     Dates: start: 20171108
  21. DOXORUBICIN [Interacting]
     Active Substance: DOXORUBICIN
     Indication: HODGKIN^S DISEASE
     Dosage: 25 MILLIGRAM/SQ. METER, QD
     Route: 064
     Dates: start: 20171108
  22. AMOXICILLIN. [Interacting]
     Active Substance: AMOXICILLIN
     Indication: ANTIBIOTIC THERAPY
     Dosage: UNK
     Route: 064
  23. DACARBAZINE. [Interacting]
     Active Substance: DACARBAZINE
     Indication: HODGKIN^S DISEASE
     Dosage: 730 MILLIGRAM, QD
     Route: 064
     Dates: start: 20171108
  24. PREDNISONE. [Interacting]
     Active Substance: PREDNISONE
     Indication: PRODUCT USED FOR UNKNOWN INDICATION
     Dosage: 40 MILLIGRAM, QD
     Route: 064
     Dates: start: 201711, end: 201711
  25. DEXAMETHASONE. [Interacting]
     Active Substance: DEXAMETHASONE
     Indication: HODGKIN^S DISEASE
     Dosage: 10 MILLIGRAM, QD
     Route: 064
     Dates: start: 20171108
  26. VINBLASTINE SULFATE. [Interacting]
     Active Substance: VINBLASTINE SULFATE
     Indication: HODGKIN^S DISEASE
     Dosage: 10 MILLIGRAM, QD
     Route: 064
  27. DEXAMETHASONE. [Interacting]
     Active Substance: DEXAMETHASONE
     Indication: PROPHYLAXIS OF NAUSEA AND VOMITING
  28. ONDANSETRON [Interacting]
     Active Substance: ONDANSETRON
     Dosage: UNK
     Route: 064
  29. VINBLASTINE [Interacting]
     Active Substance: VINBLASTINE
     Dosage: 5 MILLIGRAM/SQ. METER
     Route: 064
     Dates: start: 20171108
  30. VALACICLOVIR [Interacting]
     Active Substance: VALACYCLOVIR HYDROCHLORIDE
     Indication: PRODUCT USED FOR UNKNOWN INDICATION
     Dosage: 500 MILLIGRAM, QD
     Route: 064
     Dates: start: 2017
  31. ONDANSETRON [Interacting]
     Active Substance: ONDANSETRON
     Indication: FOETAL EXPOSURE DURING PREGNANCY
     Dosage: 16 MILLIGRAM, QD
     Route: 064
     Dates: start: 20171108, end: 201711
  32. GLUCOSE [Interacting]
     Active Substance: DEXTROSE
     Indication: HODGKIN^S DISEASE
     Dosage: 250 MILLILITER, QD
     Route: 064
     Dates: start: 20171108
  33. SODIUM CHLORIDE. [Suspect]
     Active Substance: SODIUM CHLORIDE
     Indication: HODGKIN^S DISEASE
     Dosage: 20 MILLILITER
     Route: 064
     Dates: start: 20171108

REACTIONS (7)
  - Troponin increased [Recovered/Resolved]
  - Premature baby [Recovered/Resolved]
  - Cardiac dysfunction [Recovered/Resolved]
  - Drug interaction [Recovered/Resolved]
  - Cardiotoxicity [Recovered/Resolved]
  - Off label use [Unknown]
  - Foetal exposure during pregnancy [Recovered/Resolved]

NARRATIVE: CASE EVENT DATE: 2017
